FAERS Safety Report 6865265-5 (Version None)
Quarter: 2010Q3

REPORT INFORMATION
  Report Type: 
  Country: None (occurrence: None)
  Receive Date: 20100721
  Receipt Date: 20080418
  Transmission Date: 20110219
  Serious: No
  Sender: FDA-Public Use
  Company Number: US-PFIZER INC-2008036125

PATIENT
  Sex: Female
  Weight: 63.5 kg

DRUGS (10)
  1. CHANTIX [Suspect]
     Indication: SMOKING CESSATION THERAPY
     Dates: start: 20070501, end: 20070601
  2. ALL OTHER THERAPEUTIC PRODUCTS [Concomitant]
  3. SYNTHROID [Concomitant]
  4. IBUPROFEN [Concomitant]
  5. CHONDROITIN/GLUCOSAMINE [Concomitant]
  6. MULTI-VITAMINS [Concomitant]
  7. ACETYLSALICYLIC ACID [Concomitant]
  8. ZOCOR [Concomitant]
  9. GUAIFENESIN [Concomitant]
  10. PARAFON FORTE [Concomitant]

REACTIONS (1)
  - MALAISE [None]
